FAERS Safety Report 19217810 (Version 1)
Quarter: 2021Q2

REPORT INFORMATION
  Report Type: Spontaneous
  Country: US (occurrence: US)
  Receive Date: 20210505
  Receipt Date: 20210505
  Transmission Date: 20210717
  Serious: No
  Sender: FDA-Public Use
  Company Number: US-VER-202100062

PATIENT
  Age: 77 Year
  Sex: Male
  Weight: 107 kg

DRUGS (3)
  1. TRELSTAR [Suspect]
     Active Substance: TRIPTORELIN PAMOATE
     Indication: PROSTATE CANCER
     Dosage: ^HALF THE DOSE OF HIS 22.5 MG PRESCRIBED DOSE^
     Route: 065
     Dates: start: 202101
  2. TRELSTAR [Suspect]
     Active Substance: TRIPTORELIN PAMOATE
     Indication: PROSTATE CANCER
     Dosage: 22.5 MG, 2X/YEAR (EVERY 6 MONTHS)
     Route: 065
     Dates: start: 2014
  3. BICALUTAMIDE. [Concomitant]
     Active Substance: BICALUTAMIDE
     Route: 065

REACTIONS (3)
  - Accidental underdose [Not Recovered/Not Resolved]
  - Product physical consistency issue [Recovered/Resolved]
  - Product administration error [Recovered/Resolved]

NARRATIVE: CASE EVENT DATE: 202101
